FAERS Safety Report 13253000 (Version 1)
Quarter: 2017Q1

REPORT INFORMATION
  Report Type: Spontaneous
  Country: US (occurrence: US)
  Receive Date: 20170220
  Receipt Date: 20170220
  Transmission Date: 20170428
  Serious: No
  Sender: FDA-Public Use
  Company Number: US-ACADIA PHARMACEUTICALS INC.-ACA-2016-001471

PATIENT
  Sex: Male
  Weight: 52.15 kg

DRUGS (2)
  1. SEROQUEL [Concomitant]
     Active Substance: QUETIAPINE FUMARATE
     Indication: PRODUCT USED FOR UNKNOWN INDICATION
     Dosage: 150 MG, PRN
     Route: 065
  2. NUPLAZID [Suspect]
     Active Substance: PIMAVANSERIN TARTRATE
     Indication: ABNORMAL BEHAVIOUR
     Dosage: 34 MG, QD
     Route: 048
     Dates: start: 20161118, end: 20161128

REACTIONS (8)
  - Off label use [None]
  - Somnolence [Unknown]
  - Agitation [Unknown]
  - Decreased appetite [Unknown]
  - Physical assault [Unknown]
  - Headache [Unknown]
  - Disorientation [Unknown]
  - Feeling abnormal [Unknown]

NARRATIVE: CASE EVENT DATE: 2016
